FAERS Safety Report 8828133 (Version 1)
Quarter: 2012Q4

REPORT INFORMATION
  Report Type: 
  Country: US (occurrence: US)
  Receive Date: 20121005
  Receipt Date: 20121005
  Transmission Date: 20130627
  Serious: No
  Sender: FDA-Public Use
  Company Number: US-PFIZER INC-2012245128

PATIENT
  Age: 62 Year
  Sex: Female
  Weight: 49.9 kg

DRUGS (2)
  1. CELEBREX [Suspect]
     Indication: OSTEOARTHRITIS
     Dosage: UNK
     Dates: start: 2011, end: 2012
  2. CELEBREX [Suspect]
     Indication: ARTHRALGIA

REACTIONS (1)
  - Abdominal pain upper [Recovered/Resolved]
